FAERS Safety Report 4408758-2 (Version None)
Quarter: 2004Q3

REPORT INFORMATION
  Report Type: 
  Country: None (occurrence: None)
  Receive Date: 20040727
  Receipt Date: 20040712
  Transmission Date: 20050211
  Serious: Yes (Death, Life-Threatening, Disabling, Other)
  Sender: FDA-Public Use
  Company Number: PHEH2004US07432

PATIENT
  Age: 69 Year
  Sex: Female
  Weight: 44 kg

DRUGS (2)
  1. CLOZARIL [Suspect]
     Indication: SCHIZOPHRENIA
     Dosage: 25 MG/DAY
     Route: 048
     Dates: start: 20040611, end: 20040701
  2. LITHIUM [Concomitant]
     Indication: SCHIZOAFFECTIVE DISORDER
     Dosage: 600 MG/DAY
     Dates: start: 19820101, end: 20040601

REACTIONS (5)
  - ANOREXIA [None]
  - DYSPHAGIA [None]
  - DYSPNOEA [None]
  - LUNG NEOPLASM MALIGNANT [None]
  - WEIGHT DECREASED [None]
